FAERS Safety Report 5738448-5 (Version None)
Quarter: 2008Q2

REPORT INFORMATION
  Report Type: 
  Country: None (occurrence: None)
  Receive Date: 20080514
  Receipt Date: 20080505
  Transmission Date: 20081010
  Serious: Yes (Other)
  Sender: FDA-Public Use
  Company Number: DE-ALLERGAN-0805682US

PATIENT
  Sex: Female

DRUGS (2)
  1. BOTOX [Suspect]
     Indication: HYPERTONIC BLADDER
     Dosage: 200 UNITS, SINGLE
     Route: 030
     Dates: start: 20060601, end: 20060601
  2. BOTOX [Suspect]
     Dosage: 200 UNITS, SINGLE
     Route: 030
     Dates: start: 20050901, end: 20050901

REACTIONS (4)
  - DYSURIA [None]
  - INFLUENZA LIKE ILLNESS [None]
  - NEUTRALISING ANTIBODIES POSITIVE [None]
  - RHEUMATOID ARTHRITIS [None]
